FAERS Safety Report 7128227-9 (Version None)
Quarter: 2010Q4

REPORT INFORMATION
  Report Type: 
  Country: None (occurrence: None)
  Receive Date: 20101130
  Receipt Date: 20101111
  Transmission Date: 20110411
  Serious: Yes (Other)
  Sender: FDA-Public Use
  Company Number: US-AMGEN-QUU411506

PATIENT

DRUGS (13)
  1. NPLATE [Suspect]
     Indication: IDIOPATHIC THROMBOCYTOPENIC PURPURA
     Dosage: UNK UNK, QWK
     Route: 058
     Dates: start: 20081216
  2. NPLATE [Suspect]
     Dosage: UNK
     Dates: end: 20101109
  3. NPLATE [Suspect]
     Dosage: UNK
  4. NPLATE [Suspect]
     Dosage: UNK
     Dates: end: 20101109
  5. CORTICOSTEROID NOS [Concomitant]
  6. METFORMIN [Concomitant]
     Dosage: UNK UNK, UNK
     Dates: start: 20100301
  7. LORAZEPAM [Concomitant]
     Dosage: UNK UNK, UNK
     Dates: start: 20100401
  8. PREDNISONE [Concomitant]
     Dosage: UNK MG, QOD
  9. FLEXERIL [Concomitant]
  10. VICODIN [Concomitant]
  11. SOLU-MEDROL [Concomitant]
  12. BENADRYL [Concomitant]
  13. GABAPENTIN [Concomitant]

REACTIONS (11)
  - ABDOMINAL PAIN [None]
  - BACK PAIN [None]
  - CONTUSION [None]
  - MUSCULOSKELETAL PAIN [None]
  - NEUROPATHY PERIPHERAL [None]
  - OEDEMA PERIPHERAL [None]
  - PAIN [None]
  - PAIN IN EXTREMITY [None]
  - PLATELET COUNT ABNORMAL [None]
  - PRURITUS [None]
  - THERAPEUTIC RESPONSE UNEXPECTED [None]
